FAERS Safety Report 7451550-5 (Version None)
Quarter: 2011Q2

REPORT INFORMATION
  Report Type: 
  Country: None (occurrence: None)
  Receive Date: 20110502
  Receipt Date: 20100824
  Transmission Date: 20111010
  Serious: No
  Sender: FDA-Public Use
  Company Number: US-ASTRAZENECA-2010SE06343

PATIENT
  Sex: Male

DRUGS (5)
  1. ALINE [Concomitant]
  2. LISINOPRIL [Concomitant]
  3. CRESTOR [Suspect]
     Route: 048
  4. NEXIUM [Suspect]
     Route: 048
     Dates: start: 20070101
  5. METFORMIN [Concomitant]

REACTIONS (3)
  - DIABETES MELLITUS [None]
  - VOMITING [None]
  - DRUG INEFFECTIVE [None]
